FAERS Safety Report 8734505 (Version 2)
Quarter: 2015Q2

REPORT INFORMATION
  Report Type: Report from Study
  Country: US (occurrence: US)
  Receive Date: 20120821
  Receipt Date: 20150625
  Transmission Date: 20150821
  Serious: Yes (Other)
  Sender: FDA-Public Use
  Company Number: US-ROCHE-1100830

PATIENT
  Age: 54 Year
  Sex: Male

DRUGS (18)
  1. ACTIVASE [Suspect]
     Active Substance: ALTEPLASE
     Indication: HYPERTENSION
     Route: 041
     Dates: start: 19950112
  2. MORPHINE SULFATE. [Concomitant]
     Active Substance: MORPHINE SULFATE
     Route: 042
     Dates: start: 19950112
  3. MORPHINE SULFATE. [Concomitant]
     Active Substance: MORPHINE SULFATE
     Route: 042
     Dates: start: 19950112
  4. ACTIVASE [Suspect]
     Active Substance: ALTEPLASE
     Indication: ARTERIOSPASM CORONARY
  5. ACTIVASE [Suspect]
     Active Substance: ALTEPLASE
     Indication: HYPERLIPIDAEMIA
     Route: 041
  6. ACTIVASE [Suspect]
     Active Substance: ALTEPLASE
     Indication: ARTERIOSCLEROSIS
  7. MORPHINE SULFATE. [Concomitant]
     Active Substance: MORPHINE SULFATE
     Route: 042
     Dates: start: 19950112
  8. MORPHINE SULFATE. [Concomitant]
     Active Substance: MORPHINE SULFATE
     Route: 042
     Dates: start: 19950112
  9. ACTIVASE [Suspect]
     Active Substance: ALTEPLASE
     Indication: ACUTE MYOCARDIAL INFARCTION
     Route: 065
     Dates: start: 19950104
  10. ACTIVASE [Suspect]
     Active Substance: ALTEPLASE
     Indication: CORONARY ARTERY INSUFFICIENCY
  11. ASPIRIN. [Concomitant]
     Active Substance: ASPIRIN
     Route: 065
  12. DILATRATE SR [Concomitant]
     Active Substance: ISOSORBIDE DINITRATE
     Route: 048
  13. HEPARIN [Concomitant]
     Active Substance: HEPARIN SODIUM
     Route: 040
  14. MORPHINE SULFATE. [Concomitant]
     Active Substance: MORPHINE SULFATE
     Route: 042
     Dates: start: 19950112
  15. LOPRESSOR [Concomitant]
     Active Substance: METOPROLOL TARTRATE
     Route: 065
  16. ZANTAC [Concomitant]
     Active Substance: RANITIDINE HYDROCHLORIDE
     Route: 065
  17. ATROPIN [Concomitant]
     Route: 065
     Dates: start: 19950112
  18. MORPHINE SULFATE. [Concomitant]
     Active Substance: MORPHINE SULFATE
     Route: 042
     Dates: start: 19950112

REACTIONS (3)
  - Pain [Unknown]
  - No therapeutic response [Unknown]
  - Ventricular extrasystoles [Unknown]

NARRATIVE: CASE EVENT DATE: 19950104
